FAERS Safety Report 4360921-5 (Version None)
Quarter: 2004Q2

REPORT INFORMATION
  Report Type: 
  Country: None (occurrence: None)
  Receive Date: 20040517
  Receipt Date: 20040507
  Transmission Date: 20050107
  Serious: Yes (Hospitalization)
  Sender: FDA-Public Use
  Company Number: TPG2004A00011

PATIENT
  Age: 77 Year
  Sex: Female

DRUGS (6)
  1. ACTOS [Suspect]
     Indication: DIABETES MELLITUS NON-INSULIN-DEPENDENT
     Dosage: 30 MG (30 MG, 1 IN 1 D); PER ORAL
     Route: 048
     Dates: start: 20030702
  2. AMARYL [Concomitant]
  3. GLUCOPHAGE [Concomitant]
  4. INDERAL [Concomitant]
  5. ENAC 20 (ENALAPRIL MALEATE) [Concomitant]
  6. CO ENAC (VASERETIC) [Concomitant]

REACTIONS (1)
  - PANCREATITIS [None]
